FAERS Safety Report 6691666-4 (Version None)
Quarter: 2010Q2

REPORT INFORMATION
  Report Type: 
  Country: None (occurrence: None)
  Receive Date: 20100422
  Receipt Date: 20090728
  Transmission Date: 20101027
  Serious: No
  Sender: FDA-Public Use
  Company Number: US-ASTRAZENECA-2009UW21395

PATIENT
  Age: 79 Year
  Sex: Male

DRUGS (1)
  1. TOPROL-XL [Suspect]
     Route: 048
     Dates: start: 20080101

REACTIONS (4)
  - ASTHENIA [None]
  - DYSPNOEA [None]
  - HEART RATE DECREASED [None]
  - MUSCULAR WEAKNESS [None]
